FAERS Safety Report 9981278 (Version 5)
Quarter: 2014Q2

REPORT INFORMATION
  Report Type: Spontaneous
  Country: US (occurrence: None)
  Receive Date: 20140305
  Receipt Date: 20140507
  Transmission Date: 20141212
  Serious: Yes (Other)
  Sender: FDA-Public Use
  Company Number: 2014US001574

PATIENT
  Age: 50 Year
  Sex: Male

DRUGS (4)
  1. HORIZANT [Suspect]
     Indication: NEURALGIA
     Route: 048
     Dates: end: 20140210
  2. PERCOCET (OXYCODONE HYDROCHLORIDE, TEREPHTHALATE, PARACETAMOL) [Concomitant]
  3. HYDROCODONE (HYDROCODONE) [Concomitant]
  4. LYRICA(PREGABALIN) [Concomitant]

REACTIONS (4)
  - Rash generalised [None]
  - Skin exfoliation [None]
  - Skin irritation [None]
  - Off label use [None]
